FAERS Safety Report 8838401 (Version 1)
Quarter: 2012Q4

REPORT INFORMATION
  Report Type: 
  Country: US (occurrence: US)
  Receive Date: 20121012
  Receipt Date: 20121012
  Transmission Date: 20130627
  Serious: Yes (Other)
  Sender: FDA-Public Use
  Company Number: CHPA2012US021276

PATIENT
  Age: 54 Year
  Sex: Female

DRUGS (5)
  1. MAALOX ANTACID/ANTIGAS MAX QDTABS ASST [Suspect]
     Indication: ABDOMINAL DISCOMFORT
     Dosage: 4 tablets as needed
     Route: 048
     Dates: end: 2012
  2. IBUMAX [Concomitant]
  3. DRUG THERAPY NOS [Concomitant]
  4. GINGER [Concomitant]
  5. VITAMIN C [Concomitant]

REACTIONS (2)
  - Diabetes mellitus [Not Recovered/Not Resolved]
  - Incorrect dose administered [Unknown]
